FAERS Safety Report 24554453 (Version 1)
Quarter: 2024Q4

REPORT INFORMATION
  Report Type: Report from Study
  Country: RO (occurrence: RO)
  Receive Date: 20241028
  Receipt Date: 20241028
  Transmission Date: 20250115
  Serious: Yes (Other)
  Sender: ROCHE
  Company Number: RO-ROCHE-10000113684

PATIENT
  Age: 72 Year
  Sex: Female
  Weight: 64 kg

DRUGS (1)
  1. HERCEPTIN [Suspect]
     Active Substance: TRASTUZUMAB
     Indication: Product used for unknown indication
     Route: 065

REACTIONS (8)
  - Paresis [Unknown]
  - Facial paresis [Unknown]
  - Malaise [Unknown]
  - Nasopharyngitis [Unknown]
  - Hypertension [Unknown]
  - Gait disturbance [Unknown]
  - Hypoaesthesia [Unknown]
  - Back pain [Unknown]
